FAERS Safety Report 8567674-5 (Version None)
Quarter: 2012Q3

REPORT INFORMATION
  Report Type: 
  Country: None (occurrence: None)
  Receive Date: 20120803
  Receipt Date: 20120726
  Transmission Date: 20120928
  Serious: Yes (Hospitalization)
  Sender: FDA-Public Use
  Company Number: US-JNJFOC-20120401618

PATIENT
  Sex: Male
  Weight: 83.4 kg

DRUGS (6)
  1. HUMIRA [Concomitant]
     Indication: CROHN'S DISEASE
     Dates: start: 20101203
  2. MESALAMINE [Concomitant]
     Route: 048
  3. CALCIUM CARBONATE [Concomitant]
  4. ASCORBIC ACID [Concomitant]
  5. REMICADE [Suspect]
     Indication: CROHN'S DISEASE
     Route: 042
     Dates: start: 20120127
  6. REMICADE [Suspect]
     Route: 042
     Dates: start: 20090207, end: 20101208

REACTIONS (1)
  - CROHN'S DISEASE [None]
